FAERS Safety Report 9506189 (Version 1)
Quarter: 2013Q1

REPORT INFORMATION
  Report Type: Spontaneous
  Country: US (occurrence: None)
  Receive Date: 20130301
  Receipt Date: 20130301
  Transmission Date: 20140127
  Serious: Yes (Other)
  Sender: FDA-Public Use
  Company Number: 342980

PATIENT
  Age: 9 Year
  Sex: Male
  Weight: 22.7 kg

DRUGS (2)
  1. NOVOLIN R RELI-ON (INSULIN HUMAN) SOLUTION FOR INJECTION, 100 IU/ML [Suspect]
     Indication: TYPE 1 DIABETES MELLITUS
     Dosage: SINGLE  DOSE
     Route: 042
  2. LANTUS (INSULIN GLARGINE) [Concomitant]

REACTIONS (3)
  - Anaphylactic reaction [None]
  - Blood glucose decreased [None]
  - Incorrect route of drug administration [None]
